FAERS Safety Report 7418097-3 (Version None)
Quarter: 2011Q2

REPORT INFORMATION
  Report Type: 
  Country: None (occurrence: None)
  Receive Date: 20110415
  Receipt Date: 20110404
  Transmission Date: 20111010
  Serious: Yes (Hospitalization, Other)
  Sender: FDA-Public Use
  Company Number: US-ELI_LILLY_AND_COMPANY-US201104002249

PATIENT
  Sex: Female

DRUGS (11)
  1. FUROSEMIDE [Concomitant]
     Dosage: 40 MG, QD
  2. CARDIZEM LA [Concomitant]
     Dosage: 180 MG, QD
  3. PLAVIX [Concomitant]
     Dosage: 75 MG, QD
  4. SINGULAIR [Concomitant]
     Dosage: 1 DF, QD
  5. ETODOLAC [Concomitant]
     Dosage: 1 DF, BID
  6. LEVOTHROID [Concomitant]
     Dosage: 88 MG, QD
  7. VASOTEC [Concomitant]
     Dosage: 10 MG, BID
  8. SIMVASTATIN [Concomitant]
     Dosage: 40 MG, QD
  9. EVISTA [Suspect]
     Indication: PROPHYLAXIS
     Dosage: 60 MG, QD
  10. ISOSORBIDE DINITRATE [Concomitant]
     Dosage: 60 MG, QD
  11. METFORMIN HCL [Concomitant]
     Dosage: 1 DF, BID

REACTIONS (4)
  - BONE GRAFT [None]
  - DENTAL IMPLANTATION [None]
  - SWELLING FACE [None]
  - JAW FRACTURE [None]
